FAERS Safety Report 10006768 (Version 2)
Quarter: 2014Q1

REPORT INFORMATION
  Report Type: Spontaneous
  Country: US (occurrence: US)
  Receive Date: 20140313
  Receipt Date: 20140313
  Transmission Date: 20141002
  Serious: Yes (Hospitalization)
  Sender: FDA-Public Use
  Company Number: US-GILEAD-2012-0063467

PATIENT
  Age: 83 Year
  Sex: Female

DRUGS (13)
  1. LETAIRIS [Suspect]
     Indication: PULMONARY HYPERTENSION
     Dosage: 5 MG, QD
     Route: 048
     Dates: start: 20120924, end: 20121003
  2. LETAIRIS [Suspect]
     Indication: SCLERODERMA
  3. TRAZODONE [Concomitant]
  4. WARFARIN [Concomitant]
  5. TORSEMIDE [Concomitant]
  6. CRESTOR [Concomitant]
  7. PREDNISONE [Concomitant]
  8. ACTOS [Concomitant]
  9. LEVOXYL [Concomitant]
  10. HUMALOG [Concomitant]
  11. GLIMEPIRIDE [Concomitant]
  12. NEXIUM                             /01479302/ [Concomitant]
  13. COREG [Concomitant]

REACTIONS (2)
  - Fluid retention [Unknown]
  - Cardiac failure [Unknown]
